FAERS Safety Report 9933770 (Version 2)
Quarter: 2014Q1

REPORT INFORMATION
  Report Type: Report from Study
  Country: US (occurrence: US)
  Receive Date: 20140228
  Receipt Date: 20140228
  Transmission Date: 20141002
  Serious: No
  Sender: FDA-Public Use
  Company Number: US-MYLANLABS-2013S1013311

PATIENT
  Age: 8 Year
  Sex: Female
  Weight: 27.9 kg

DRUGS (6)
  1. AMNESTEEM CAPSULES [Suspect]
     Indication: MEDULLOBLASTOMA RECURRENT
     Dosage: 80MG BID X 14 DAYS PER CYCLE
     Route: 048
     Dates: start: 2013, end: 20130515
  2. AMNESTEEM CAPSULES [Suspect]
     Indication: OFF LABEL USE
     Dosage: 80MG BID X 14 DAYS PER CYCLE
     Route: 048
     Dates: start: 2013, end: 20130515
  3. CLARAVIS [Suspect]
     Dosage: 80MG BID X 14 DAYS PER CYCLE
     Route: 048
     Dates: start: 20130117, end: 2013
  4. CLARAVIS [Suspect]
     Indication: OFF LABEL USE
     Dosage: 80MG BID X 14 DAYS PER CYCLE
     Route: 048
     Dates: start: 20130117, end: 2013
  5. MIRALAX /00754501/ [Concomitant]
  6. ZANTAC [Concomitant]

REACTIONS (5)
  - Depressed mood [Recovered/Resolved]
  - Crying [Recovered/Resolved]
  - Fatigue [Recovered/Resolved]
  - Decreased activity [Recovered/Resolved]
  - Dry skin [Recovered/Resolved]
